FAERS Safety Report 9224286 (Version 1)
Quarter: 2013Q2

REPORT INFORMATION
  Report Type: Spontaneous
  Country: GB (occurrence: GB)
  Receive Date: 20130411
  Receipt Date: 20130411
  Transmission Date: 20140414
  Serious: Yes (Other)
  Sender: FDA-Public Use
  Company Number: GB-009507513-1304GBR004308

PATIENT
  Sex: Male

DRUGS (3)
  1. INTRONA [Suspect]
     Indication: HEPATITIS C
  2. TELAPREVIR [Suspect]
     Indication: HEPATITIS C
     Dosage: UNK,STOPPED AT WEEK 9
     Route: 048
  3. TELAPREVIR [Suspect]
     Dosage: UNK,STOPPED AT WEEK 20
     Route: 048

REACTIONS (2)
  - Optic nerve sheath haemorrhage [Unknown]
  - Rash [Unknown]
